FAERS Safety Report 7455304-5 (Version None)
Quarter: 2011Q2

REPORT INFORMATION
  Report Type: 
  Country: None (occurrence: None)
  Receive Date: 20110503
  Receipt Date: 20110422
  Transmission Date: 20111010
  Serious: Yes (Hospitalization)
  Sender: FDA-Public Use
  Company Number: FR-BRISTOL-MYERS SQUIBB COMPANY-15703283

PATIENT
  Age: 70 Year
  Sex: Female

DRUGS (3)
  1. AMARYL [Concomitant]
     Dosage: TABS RESTARTED ON 28JAN2011
     Route: 048
  2. GLUCOPHAGE [Suspect]
     Indication: DIABETES MELLITUS
     Route: 048
  3. FLUDEX [Concomitant]
     Dosage: TABS RESTARTED ON 28JAN2011
     Route: 048

REACTIONS (5)
  - VOMITING [None]
  - RENAL FAILURE ACUTE [None]
  - LACTIC ACIDOSIS [None]
  - PSEUDOMONAS INFECTION [None]
  - HYPOGLYCAEMIA [None]
